FAERS Safety Report 20421184 (Version 2)
Quarter: 2022Q2

REPORT INFORMATION
  Report Type: Spontaneous
  Country: US (occurrence: US)
  Receive Date: 20220203
  Receipt Date: 20220418
  Transmission Date: 20220720
  Serious: Yes (Hospitalization)
  Sender: FDA-Public Use
  Company Number: US-RECORDATI-2022000271

PATIENT
  Age: 13 Year
  Sex: Female
  Weight: 38.5 kg

DRUGS (5)
  1. DACTINOMYCIN [Suspect]
     Active Substance: DACTINOMYCIN
     Indication: Embryonal rhabdomyosarcoma
     Dosage: 0.05 MILLIGRAM/KILOGRAM
     Route: 042
     Dates: start: 20190815, end: 20190926
  2. CYCLOPHOSPHAMIDE [Suspect]
     Active Substance: CYCLOPHOSPHAMIDE
     Indication: Embryonal rhabdomyosarcoma
     Dosage: 1200 MILLIGRAM/SQ. METER
     Route: 042
     Dates: start: 20190815, end: 20190926
  3. CAMPTOSAR [Suspect]
     Active Substance: IRINOTECAN HYDROCHLORIDE
     Indication: Embryonal rhabdomyosarcoma
     Dosage: 50 MILLIGRAM/SQ. METER
     Route: 042
     Dates: start: 20190903, end: 20190907
  4. VINCRISTINE SULFATE [Suspect]
     Active Substance: VINCRISTINE SULFATE
     Indication: Embryonal rhabdomyosarcoma
     Dosage: 1.5 MILLIGRAM/SQ. METER
     Route: 042
     Dates: start: 20190815
  5. TEMSIROLIMUS [Suspect]
     Active Substance: TEMSIROLIMUS
     Indication: Embryonal rhabdomyosarcoma
     Dosage: 15 MILLIGRAM/SQ. METER
     Route: 042
     Dates: start: 20190822, end: 20191003

REACTIONS (3)
  - Sinus tachycardia [Recovering/Resolving]
  - Urinary tract infection [Unknown]
  - Pyrexia [Not Recovered/Not Resolved]

NARRATIVE: CASE EVENT DATE: 20191009
